FAERS Safety Report 8726036 (Version 4)
Quarter: 2013Q2

REPORT INFORMATION
  Report Type: Spontaneous
  Country: US (occurrence: US)
  Receive Date: 20120816
  Receipt Date: 20130521
  Transmission Date: 20140414
  Serious: No
  Sender: FDA-Public Use
  Company Number: US-TEVA-346362USA

PATIENT
  Age: 42 Year
  Sex: Female
  Weight: 38.59 kg

DRUGS (1)
  1. ACTIQ [Suspect]
     Indication: CROHN^S DISEASE
     Route: 002

REACTIONS (8)
  - Malaise [Not Recovered/Not Resolved]
  - Heart rate increased [Not Recovered/Not Resolved]
  - Dizziness [Not Recovered/Not Resolved]
  - Pain [Not Recovered/Not Resolved]
  - Off label use [Not Recovered/Not Resolved]
  - Palpitations [Not Recovered/Not Resolved]
  - Respiratory rate increased [Not Recovered/Not Resolved]
  - Euphoric mood [Not Recovered/Not Resolved]
